FAERS Safety Report 11454007 (Version 1)
Quarter: 2015Q3

REPORT INFORMATION
  Report Type: Spontaneous
  Country: US (occurrence: US)
  Receive Date: 20150903
  Receipt Date: 20150903
  Transmission Date: 20151125
  Serious: No
  Sender: FDA-Public Use
  Company Number: US-UPSHER-SMITH LABORATORIES, INC.-14002741

PATIENT

DRUGS (8)
  1. VITAMIN E [Concomitant]
     Active Substance: .ALPHA.-TOCOPHEROL
     Indication: IDIOPATHIC GENERALISED EPILEPSY
     Dosage: 400 IU, QD
     Route: 048
  2. SELENIUM [Concomitant]
     Active Substance: SELENIUM
     Indication: IDIOPATHIC GENERALISED EPILEPSY
     Dosage: 50 MG, QD
     Route: 048
  3. DIVALPROEX SODIUM. [Suspect]
     Active Substance: DIVALPROEX SODIUM
     Indication: IDIOPATHIC GENERALISED EPILEPSY
     Dosage: 500 MG, QD
     Route: 048
     Dates: start: 20140821, end: 201409
  4. CLONAZEPAM. [Concomitant]
     Active Substance: CLONAZEPAM
     Indication: IDIOPATHIC GENERALISED EPILEPSY
     Dosage: UNK, UNK
  5. CARNITOR [Concomitant]
     Active Substance: LEVOCARNITINE
     Indication: NUTRITIONAL SUPPLEMENTATION
     Dosage: UNK, UNK
     Route: 048
  6. VITAMIN D [Concomitant]
     Active Substance: CHOLECALCIFEROL
     Indication: NUTRITIONAL SUPPLEMENTATION
     Dosage: UNK, EVERY OTHER DAY
     Route: 048
  7. HOMEOPATHIC PREPARATION [Concomitant]
     Active Substance: HOMEOPATHICS
     Indication: NUTRITIONAL SUPPLEMENTATION
     Dosage: UNK, UNK
     Route: 048
  8. FISH OIL [Concomitant]
     Active Substance: FISH OIL
     Indication: IDIOPATHIC GENERALISED EPILEPSY
     Dosage: UNK, QD
     Route: 048

REACTIONS (2)
  - Seizure [Recovering/Resolving]
  - Gastrooesophageal reflux disease [Recovering/Resolving]

NARRATIVE: CASE EVENT DATE: 20140821
